FAERS Safety Report 9581360 (Version 2)
Quarter: 2013Q4

REPORT INFORMATION
  Report Type: Report from Study
  Country: DE (occurrence: DE)
  Receive Date: 20131002
  Receipt Date: 20131121
  Transmission Date: 20140711
  Serious: Yes (Other)
  Sender: FDA-Public Use
  Company Number: DE-ABBVIE-13P-062-1152895-00

PATIENT
  Sex: Female
  Weight: 105 kg

DRUGS (4)
  1. HUMIRA [Suspect]
     Indication: RHEUMATOID ARTHRITIS
     Route: 058
     Dates: start: 20120528
  2. CO-APROVEL [Concomitant]
     Indication: ESSENTIAL HYPERTENSION
  3. L-THYROXINE [Concomitant]
     Indication: THYROID DISORDER
  4. VENTOLAIR [Concomitant]
     Indication: ANTIALLERGIC THERAPY

REACTIONS (1)
  - Diabetes mellitus [Not Recovered/Not Resolved]
